FAERS Safety Report 7979672-0 (Version None)
Quarter: 2011Q4

REPORT INFORMATION
  Report Type: 
  Country: None (occurrence: None)
  Receive Date: 20111214
  Receipt Date: 20111129
  Transmission Date: 20120403
  Serious: Yes (Death, Hospitalization, Other)
  Sender: FDA-Public Use
  Company Number: IR-WATSON-2011-21120

PATIENT
  Age: 47 Year
  Sex: Female

DRUGS (2)
  1. COTRIM [Suspect]
     Indication: URINARY TRACT INFECTION
  2. RISPERIDONE [Suspect]
     Indication: ACUTE PSYCHOSIS
     Dosage: 4 MG, DAILY
     Route: 065

REACTIONS (6)
  - CARDIAC ARREST [None]
  - VENTRICULAR FIBRILLATION [None]
  - ELECTROCARDIOGRAM QT PROLONGED [None]
  - ELECTROCARDIOGRAM T WAVE ABNORMAL [None]
  - VENTRICULAR TACHYCARDIA [None]
  - SUDDEN CARDIAC DEATH [None]
